FAERS Safety Report 14157543 (Version 1)
Quarter: 2017Q4

REPORT INFORMATION
  Report Type: Report from Study
  Country: US (occurrence: US)
  Receive Date: 20171103
  Receipt Date: 20171103
  Transmission Date: 20180321
  Serious: Yes (Hospitalization)
  Sender: FDA-Public Use
  Company Number: US-GILEAD-2017-0302585

PATIENT
  Age: 72 Year
  Sex: Female

DRUGS (6)
  1. FLUTICASONE. [Concomitant]
     Active Substance: FLUTICASONE
     Dates: start: 20171004
  2. ADCIRCA [Suspect]
     Active Substance: TADALAFIL
     Indication: PULMONARY HYPERTENSION
     Dosage: 40 MG, QD
     Route: 065
     Dates: start: 20170701
  3. BUSPIRONE [Concomitant]
     Active Substance: BUSPIRONE HYDROCHLORIDE
     Dates: start: 20171006
  4. AMBRISENTAN [Suspect]
     Active Substance: AMBRISENTAN
     Indication: PULMONARY HYPERTENSION
     Dosage: 10 MG, QD
     Route: 065
     Dates: start: 20170802
  5. TRAMADOL. [Concomitant]
     Active Substance: TRAMADOL
     Dates: start: 20170804
  6. DICYCLOMINE                        /00068601/ [Concomitant]
     Active Substance: DICYCLOMINE HYDROCHLORIDE
     Dates: start: 20171013

REACTIONS (2)
  - Lung disorder [Unknown]
  - Oxygen saturation decreased [Unknown]
